FAERS Safety Report 13426041 (Version 1)
Quarter: 2017Q2

REPORT INFORMATION
  Report Type: Spontaneous
  Country: US (occurrence: US)
  Receive Date: 20170410
  Receipt Date: 20170410
  Transmission Date: 20170830
  Serious: Yes (Other)
  Sender: FDA-Public Use
  Company Number: None

PATIENT
  Age: 57 Year
  Sex: Male

DRUGS (3)
  1. WARFARIN [Concomitant]
     Active Substance: WARFARIN
  2. SIMVASTATIN. [Concomitant]
     Active Substance: SIMVASTATIN
  3. COPAXONE [Suspect]
     Active Substance: GLATIRAMER ACETATE
     Indication: MULTIPLE SCLEROSIS
     Dosage: ?          OTHER FREQUENCY:3 X WK;?
     Route: 058
     Dates: start: 20140402, end: 20170406

REACTIONS (1)
  - Prostate cancer stage I [None]

NARRATIVE: CASE EVENT DATE: 20170403
